FAERS Safety Report 5558649-9 (Version None)
Quarter: 2007Q4

REPORT INFORMATION
  Report Type: 
  Country: None (occurrence: None)
  Receive Date: 20071214
  Receipt Date: 20071126
  Transmission Date: 20080405
  Serious: No
  Sender: FDA-Public Use
  Company Number: US-BOEHRINGER INGELHEIM PHARMACEUTICALS, INC.-2007-BP-25013BP

PATIENT
  Sex: Male

DRUGS (8)
  1. FLOMAX [Suspect]
     Indication: BENIGN PROSTATIC HYPERPLASIA
     Route: 048
     Dates: start: 20071116
  2. FLOMAX [Suspect]
     Indication: NOCTURIA
  3. BP MED [Concomitant]
     Indication: HYPERTENSION
  4. CALCIUM [Concomitant]
  5. BONIVA [Concomitant]
  6. CENTRUM SILVER [Concomitant]
  7. FISH OIL [Concomitant]
  8. AMLODIPINE BESYLATE AND BENAZEPRIL HCL [Concomitant]

REACTIONS (4)
  - DRUG INEFFECTIVE [None]
  - MICTURITION DISORDER [None]
  - THERAPEUTIC RESPONSE DECREASED [None]
  - URINE FLOW DECREASED [None]
